FAERS Safety Report 16350807 (Version 1)
Quarter: 2019Q2

REPORT INFORMATION
  Report Type: Spontaneous
  Country: AU (occurrence: AU)
  Receive Date: 20190524
  Receipt Date: 20190524
  Transmission Date: 20190711
  Serious: Yes (Other)
  Sender: FDA-Public Use
  Company Number: AU-ESPERO PHARMACEUTICALS-ESP201905-000025

PATIENT
  Age: 77 Year
  Sex: Male

DRUGS (4)
  1. OMNIPAQUE [Suspect]
     Active Substance: IOHEXOL
     Indication: COMPUTERISED TOMOGRAM CORONARY ARTERY
     Dosage: 350 MGL/ML, 15 ML ONCE
     Route: 042
     Dates: start: 20190404
  2. METOPROLOL. [Concomitant]
     Active Substance: METOPROLOL
     Dates: start: 20190403, end: 20190404
  3. NITROLINGUAL PUMPSPRAY [Suspect]
     Active Substance: NITROGLYCERIN
     Indication: COMPUTERISED TOMOGRAM CORONARY ARTERY
     Route: 060
     Dates: start: 20190404
  4. NITROLINGUAL PUMPSPRAY [Suspect]
     Active Substance: NITROGLYCERIN
     Indication: VASODILATATION

REACTIONS (2)
  - Loss of consciousness [Recovered/Resolved]
  - Vomiting [Recovered/Resolved]

NARRATIVE: CASE EVENT DATE: 20190404
